FAERS Safety Report 5955605-3 (Version None)
Quarter: 2008Q4

REPORT INFORMATION
  Report Type: 
  Country: None (occurrence: None)
  Receive Date: 20081113
  Receipt Date: 20081103
  Transmission Date: 20090506
  Serious: Yes (Life-Threatening, Other)
  Sender: FDA-Public Use
  Company Number: 230908K08USA

PATIENT
  Age: 54 Year
  Sex: Female
  Weight: 95 kg

DRUGS (11)
  1. REBIF [Suspect]
     Indication: MULTIPLE SCLEROSIS
     Dosage: 44 MCG, 3 IN 1 WEEKS, SUBCUTANEOUS
     Route: 058
     Dates: start: 20080418, end: 20080718
  2. ATACAMD (CANDESARTAN CILEXETIL) [Concomitant]
  3. PROVIGIL [Concomitant]
  4. ASPIRIN [Concomitant]
  5. LEXAPRO [Concomitant]
  6. NEURONTIN [Concomitant]
  7. HYDROCODONE APAP(PERCOCET) [Concomitant]
  8. WELLBUTRIN XL [Concomitant]
  9. HYDROCORTISONE CREAM (HYDROCHLORIDE) [Concomitant]
  10. DILACOR ER (DILTIAZEM) [Concomitant]
  11. FOLTX (TRIOBE) [Concomitant]

REACTIONS (2)
  - MYELODYSPLASTIC SYNDROME [None]
  - THROMBOSIS [None]
